FAERS Safety Report 9020331 (Version 1)
Quarter: 2013Q1

REPORT INFORMATION
  Report Type: Spontaneous
  Country: US (occurrence: US)
  Receive Date: 20130119
  Receipt Date: 20130119
  Transmission Date: 20140127
  Serious: No
  Sender: FDA-Public Use
  Company Number: US-ALLERGAN-1208815US

PATIENT
  Age: 40 None
  Sex: Female
  Weight: 54.42 kg

DRUGS (3)
  1. BOTOX COSMETIC [Suspect]
     Indication: SKIN WRINKLING
     Dosage: 10 UNITS, SINGLE
     Route: 030
     Dates: start: 20120619, end: 20120619
  2. BOTOX COSMETIC [Suspect]
     Indication: SKIN WRINKLING
     Dosage: 27 UNITS, SINGLE
     Route: 030
     Dates: start: 20120619, end: 20120619
  3. BOTOX COSMETIC [Suspect]
     Indication: SKIN COSMETIC PROCEDURE
     Dosage: 6 UNITS, SINGLE
     Route: 030
     Dates: start: 20120619, end: 20120619

REACTIONS (5)
  - Wrong technique in drug usage process [Unknown]
  - Hyperhidrosis [Unknown]
  - Headache [Unknown]
  - Dry mouth [Not Recovered/Not Resolved]
  - Incorrect dose administered [Unknown]
